FAERS Safety Report 9338164 (Version 4)
Quarter: 2013Q3

REPORT INFORMATION
  Report Type: Report from Study
  Country: CA (occurrence: CA)
  Receive Date: 20130610
  Receipt Date: 20130910
  Transmission Date: 20140515
  Serious: Yes (Other)
  Sender: FDA-Public Use
  Company Number: CA-ROCHE-1131718

PATIENT
  Age: 15 Year
  Sex: Female
  Weight: 110 kg

DRUGS (17)
  1. ACTEMRA [Suspect]
     Indication: JUVENILE IDIOPATHIC ARTHRITIS
     Route: 042
     Dates: start: 20110525
  2. ACTEMRA [Suspect]
     Route: 042
     Dates: start: 20110604
  3. ACTEMRA [Suspect]
     Route: 042
     Dates: start: 20130522
  4. ACTEMRA [Suspect]
     Route: 042
     Dates: start: 20130507
  5. ACTEMRA [Suspect]
     Route: 042
     Dates: start: 20130423
  6. ACTEMRA [Suspect]
     Route: 042
     Dates: start: 20130409
  7. PREDNISONE [Concomitant]
     Route: 065
  8. METHOTREXATE [Concomitant]
     Route: 058
  9. INDOMETHACIN [Concomitant]
     Route: 048
  10. FOLIC ACID [Concomitant]
  11. PALAFER [Concomitant]
  12. LOSEC (CANADA) [Concomitant]
  13. CALTRATE [Concomitant]
  14. BENADRYL (CANADA) [Concomitant]
     Indication: PREMEDICATION
  15. FOLATE [Concomitant]
     Route: 048
  16. HYDROCORTISONE [Concomitant]
  17. DIPHENHYDRAMINE HYDROCHLORIDE [Concomitant]

REACTIONS (4)
  - Infusion related reaction [Recovered/Resolved]
  - Urticaria [Recovering/Resolving]
  - Ear infection [Recovered/Resolved]
  - Cough [Recovered/Resolved]
